FAERS Safety Report 6749541-2 (Version None)
Quarter: 2010Q2

REPORT INFORMATION
  Report Type: 
  Country: None (occurrence: None)
  Receive Date: 20100601
  Receipt Date: 20100520
  Transmission Date: 20101027
  Serious: Yes (Hospitalization)
  Sender: FDA-Public Use
  Company Number: DE-ASTRAZENECA-2010SE23212

PATIENT
  Sex: Female

DRUGS (8)
  1. SEROQUEL [Suspect]
     Indication: SCHIZOPHRENIA
     Route: 048
  2. ATACAND [Concomitant]
     Route: 048
  3. CLOPIDOGREL HEXAL [Concomitant]
  4. FUROSEMIDE [Concomitant]
  5. ALLOPURINOL [Concomitant]
  6. CONCOR [Concomitant]
  7. PANTOPRAZOLE SODIUM [Concomitant]
  8. THYROXIN [Concomitant]

REACTIONS (3)
  - HYPONATRAEMIA [None]
  - PULMONARY OEDEMA [None]
  - WEIGHT INCREASED [None]
